FAERS Safety Report 15483309 (Version 1)
Quarter: 2018Q4

REPORT INFORMATION
  Report Type: Spontaneous
  Country: US (occurrence: US)
  Receive Date: 20181003
  Receipt Date: 20181003
  Transmission Date: 20190205
  Serious: Yes (Hospitalization)
  Sender: FDA-Public Use
  Company Number: None

PATIENT
  Age: 78 Year
  Sex: Male
  Weight: 75.6 kg

DRUGS (10)
  1. METFORMIN HCL [Concomitant]
     Active Substance: METFORMIN HYDROCHLORIDE
  2. ZOLPIDEM TARTRATE. [Concomitant]
     Active Substance: ZOLPIDEM TARTRATE
  3. PANTOPRAZOLE SODIUM. [Concomitant]
     Active Substance: PANTOPRAZOLE SODIUM
  4. FINASTERIDE. [Concomitant]
     Active Substance: FINASTERIDE
  5. METOCLOPRAMIDE. [Concomitant]
     Active Substance: METOCLOPRAMIDE
  6. IRON [Concomitant]
     Active Substance: IRON
  7. NEUPOGEN [Suspect]
     Active Substance: FILGRASTIM
     Indication: BLADDER CANCER
     Route: 058
     Dates: start: 20180625, end: 20181003
  8. NIFEDIPINE. [Concomitant]
     Active Substance: NIFEDIPINE
  9. RAPAFLO [Concomitant]
     Active Substance: SILODOSIN
  10. METOPROLOL TARTRATE. [Concomitant]
     Active Substance: METOPROLOL TARTRATE

REACTIONS (1)
  - Hospitalisation [None]
